FAERS Safety Report 5788815-9 (Version None)
Quarter: 2008Q2

REPORT INFORMATION
  Report Type: 
  Country: None (occurrence: None)
  Receive Date: 20080626
  Receipt Date: 20080617
  Transmission Date: 20081010
  Serious: Yes (Hospitalization)
  Sender: FDA-Public Use
  Company Number: US-AMGEN-US285087

PATIENT
  Sex: Female

DRUGS (20)
  1. PANITUMUMAB [Suspect]
     Indication: COLORECTAL CANCER
     Route: 042
     Dates: start: 20071205, end: 20080522
  2. ATENOLOL [Concomitant]
  3. PROCARDIA XL [Concomitant]
  4. KLOR-CON [Concomitant]
  5. PRILOSEC [Concomitant]
  6. FLUOROURACIL [Concomitant]
     Route: 042
     Dates: start: 20071205, end: 20080313
  7. FLUOROURACIL [Concomitant]
     Route: 042
     Dates: start: 20071205, end: 20080313
  8. FLUOROURACIL [Concomitant]
     Route: 042
     Dates: start: 20080327, end: 20080327
  9. FLUOROURACIL [Concomitant]
     Route: 042
     Dates: start: 20080327, end: 20080327
  10. FLUOROURACIL [Concomitant]
     Route: 042
     Dates: start: 20080410, end: 20080522
  11. FLUOROURACIL [Concomitant]
     Route: 042
     Dates: start: 20080410, end: 20080522
  12. CAMPTOSAR [Concomitant]
     Route: 042
     Dates: start: 20071205, end: 20080313
  13. CAMPTOSAR [Concomitant]
     Route: 042
     Dates: start: 20080327, end: 20080327
  14. CAMPTOSAR [Concomitant]
     Route: 042
     Dates: start: 20080410, end: 20080522
  15. LEUCOVORIN CALCIUM [Concomitant]
     Route: 042
     Dates: start: 20071205, end: 20080313
  16. LEUCOVORIN CALCIUM [Concomitant]
     Route: 042
     Dates: start: 20080327, end: 20080327
  17. LEUCOVORIN CALCIUM [Concomitant]
     Route: 042
     Dates: start: 20080410, end: 20080522
  18. ALOXI [Concomitant]
     Route: 042
     Dates: start: 20071205, end: 20080522
  19. DECADRON [Concomitant]
     Route: 042
     Dates: start: 20071205, end: 20080522
  20. ATROPINE [Concomitant]
     Route: 042
     Dates: start: 20071205, end: 20080522

REACTIONS (2)
  - DEEP VEIN THROMBOSIS [None]
  - HYPOVOLAEMIA [None]
